FAERS Safety Report 14319950 (Version 1)
Quarter: 2017Q4

REPORT INFORMATION
  Report Type: Spontaneous
  Country: CH (occurrence: CH)
  Receive Date: 20171222
  Receipt Date: 20171222
  Transmission Date: 20180321
  Serious: Yes (Hospitalization)
  Sender: FDA-Public Use
  Company Number: CH-PFIZER INC-2017541224

PATIENT
  Age: 46 Year
  Sex: Female

DRUGS (5)
  1. ORFIRIL [Suspect]
     Active Substance: VALPROATE SODIUM
     Dosage: UNK
  2. TEMESTA (LORAZEPAM) [Suspect]
     Active Substance: LORAZEPAM
     Dosage: UNK
  3. LEPONEX [Suspect]
     Active Substance: CLOZAPINE
     Dosage: 500 MG, 1X/DAY
     Route: 048
     Dates: start: 20171205
  4. ABILIFY [Suspect]
     Active Substance: ARIPIPRAZOLE
     Dosage: UNK
  5. IMOVANE [Suspect]
     Active Substance: ZOPICLONE
     Dosage: UNK
     Route: 048

REACTIONS (4)
  - Gait disturbance [Recovered/Resolved]
  - Disorientation [Unknown]
  - Tachycardia [Unknown]
  - Salivary hypersecretion [Recovered/Resolved]

NARRATIVE: CASE EVENT DATE: 20171205
